FAERS Safety Report 15370648 (Version 1)
Quarter: 2018Q3

REPORT INFORMATION
  Report Type: Spontaneous
  Country: US (occurrence: US)
  Receive Date: 20180911
  Receipt Date: 20180911
  Transmission Date: 20181010
  Serious: Yes (Other)
  Sender: FDA-Public Use
  Company Number: US-PFIZER INC-2018362763

PATIENT
  Age: 81 Year
  Sex: Male
  Weight: 72.56 kg

DRUGS (15)
  1. FLAGYL [Suspect]
     Active Substance: METRONIDAZOLE\METRONIDAZOLE HYDROCHLORIDE
     Indication: CLOSTRIDIUM DIFFICILE COLITIS
     Dosage: UNK
     Route: 042
  2. ASPIRIN 81 [Concomitant]
     Active Substance: ASPIRIN
     Indication: BLOOD DISORDER
     Dosage: 81 MG, DAILY
     Route: 048
  3. NORCO [Concomitant]
     Active Substance: ACETAMINOPHEN\HYDROCODONE BITARTRATE
     Dosage: UNK (TOOK  ONE HALF TABLET TODAY)
  4. NITROSTAT [Concomitant]
     Active Substance: NITROGLYCERIN
     Dosage: 0.4 MG, AS NEEDED (PLACE 1 TABLET UNDER THE TONGUE EVERY 5 (FIVE) MINUTES AS NEEDED (PRN).)
     Route: 060
  5. COZAAR [Concomitant]
     Active Substance: LOSARTAN POTASSIUM
     Dosage: 25 MG, DAILY
     Route: 048
  6. FLONASE [Concomitant]
     Active Substance: FLUTICASONE PROPIONATE
     Dosage: 50 UG, AS NEEDED(1 SPRAY BY NASAL ROUTE DAILY AS NEEDED )
     Route: 045
  7. NORCO [Concomitant]
     Active Substance: ACETAMINOPHEN\HYDROCODONE BITARTRATE
     Indication: PAIN
     Dosage: 1DF, AS NEEDED (1 TABLET BY MOUTH EVERY 6 (SIX) )
     Route: 048
  8. REGLAN [METOCLOPRAMIDE HYDROCHLORIDE] [Concomitant]
     Dosage: 5 ML, 4X/DAY(DAILY BEFORE MEALS AND AT BEDTIME FOR 30 DAYS)
     Route: 048
     Dates: start: 20180904
  9. PHENERGAN [PROMETHAZINE] [Concomitant]
     Indication: NAUSEA
     Dosage: 25 MG, AS NEEDED (TAKE 1 TABLET BY MOUTH EVERY 6 (SIX) HOURS AS NEEDED )
     Route: 048
  10. FLAGYL [Suspect]
     Active Substance: METRONIDAZOLE\METRONIDAZOLE HYDROCHLORIDE
     Dosage: 500 MG, 3X/DAY
     Route: 048
  11. PRILOSEC [OMEPRAZOLE] [Concomitant]
     Dosage: 40 MG, DAILY
     Route: 048
  12. VANCOMYCIN [Suspect]
     Active Substance: VANCOMYCIN
     Indication: CLOSTRIDIUM DIFFICILE COLITIS
     Dosage: UNK
     Route: 048
  13. LASIX [Concomitant]
     Active Substance: FUROSEMIDE
     Dosage: 20 MG, AS NEEDED(1 TABLET BY MOUTH 2 (TWO) TIMES DAILY AS NEEDED )
     Route: 048
  14. PLAVIX [Concomitant]
     Active Substance: CLOPIDOGREL BISULFATE
     Dosage: 75 MG, DAILY
     Route: 048
  15. PRAVACHOL [Concomitant]
     Active Substance: PRAVASTATIN SODIUM
     Dosage: 40 MG, 1X/DAY
     Route: 048

REACTIONS (22)
  - Nausea [Unknown]
  - Decreased appetite [Unknown]
  - Haematuria [Unknown]
  - Poor quality sleep [Unknown]
  - Malaise [Unknown]
  - Abdominal pain [Unknown]
  - Dyspnoea [Unknown]
  - Neuropathy peripheral [Unknown]
  - Asthenia [Unknown]
  - Abdominal distension [Unknown]
  - Dysgeusia [Unknown]
  - Constipation [Unknown]
  - Dyskinesia [Unknown]
  - Fatigue [Unknown]
  - Peripheral swelling [Unknown]
  - Cardiomyopathy [Unknown]
  - Urinary sediment present [Unknown]
  - Vomiting [Unknown]
  - Cardiac failure congestive [Unknown]
  - Paraesthesia [Unknown]
  - Oedema peripheral [Unknown]
  - Hypoaesthesia [Unknown]
